FAERS Safety Report 18052527 (Version 2)
Quarter: 2020Q3

REPORT INFORMATION
  Report Type: Spontaneous
  Country: PT (occurrence: PT)
  Receive Date: 20200722
  Receipt Date: 20200730
  Transmission Date: 20201103
  Serious: Yes (Life-Threatening, Hospitalization, Other)
  Sender: FDA-Public Use
  Company Number: PT-AUROBINDO-AUR-APL-2020-035571

PATIENT
  Age: 68 Year
  Sex: Female

DRUGS (3)
  1. CEFUROXIME. [Suspect]
     Active Substance: CEFUROXIME
     Indication: ESCHERICHIA URINARY TRACT INFECTION
  2. CEFUROXIME. [Suspect]
     Active Substance: CEFUROXIME
     Indication: ESCHERICHIA INFECTION
     Dosage: UNK
     Route: 065
  3. CEFUROXIME. [Suspect]
     Active Substance: CEFUROXIME
     Indication: PYELONEPHRITIS ACUTE

REACTIONS (1)
  - Drug ineffective [Not Recovered/Not Resolved]
